FAERS Safety Report 6714342-8 (Version None)
Quarter: 2010Q2

REPORT INFORMATION
  Report Type: 
  Country: None (occurrence: None)
  Receive Date: 20100504
  Receipt Date: 20100427
  Transmission Date: 20101027
  Serious: Yes (Death)
  Sender: FDA-Public Use
  Company Number: 2010US001426

PATIENT
  Age: 73 Year
  Sex: Female

DRUGS (4)
  1. PROGRAF [Suspect]
     Indication: RENAL TRANSPLANT
     Dates: start: 19960605, end: 20100101
  2. PROGRAF [Suspect]
     Indication: SMALL INTESTINE TRANSPLANT
     Dates: start: 19960605, end: 20100101
  3. INSULIN (INSULIN) [Concomitant]
  4. CELLCEPT [Concomitant]

REACTIONS (1)
  - DIABETES MELLITUS [None]
